FAERS Safety Report 15098647 (Version 2)
Quarter: 2018Q4

REPORT INFORMATION
  Report Type: Spontaneous
  Country: JP (occurrence: JP)
  Receive Date: 20180702
  Receipt Date: 20181212
  Transmission Date: 20190204
  Serious: Yes (Other)
  Sender: FDA-Public Use
  Company Number: JP-GILEAD-2018-0348004

PATIENT
  Age: 86 Year
  Sex: Female
  Weight: 35 kg

DRUGS (1)
  1. HARVONI [Suspect]
     Active Substance: LEDIPASVIR\SOFOSBUVIR
     Indication: HEPATIC CIRRHOSIS
     Dosage: 1 DF
     Route: 048
     Dates: start: 20180530, end: 20180627

REACTIONS (2)
  - Headache [Recovered/Resolved]
  - Hepatic cancer [Unknown]

NARRATIVE: CASE EVENT DATE: 20180603
